FAERS Safety Report 5503664-4 (Version None)
Quarter: 2007Q4

REPORT INFORMATION
  Report Type: 
  Country: None (occurrence: None)
  Receive Date: 20071101
  Receipt Date: 20071024
  Transmission Date: 20080405
  Serious: Yes (Other)
  Sender: FDA-Public Use
  Company Number: PHNU2007DE03586

PATIENT
  Sex: Female

DRUGS (4)
  1. MYFORTIC [Suspect]
     Dosage: 720MG/DAY
  2. MYFORTIC [Suspect]
     Dosage: 180MG/DAY
  3. VALCYTE [Concomitant]
     Indication: IMMUNOSUPPRESSION
  4. PROGRAF [Concomitant]
     Indication: IMMUNOSUPPRESSION

REACTIONS (1)
  - AGRANULOCYTOSIS [None]
